FAERS Safety Report 16107261 (Version 7)
Quarter: 2020Q3

REPORT INFORMATION
  Report Type: Spontaneous
  Country: US (occurrence: US)
  Receive Date: 20190322
  Receipt Date: 20200721
  Transmission Date: 20201102
  Serious: Yes (Other)
  Sender: FDA-Public Use
  Company Number: US-SA-2019SA076315

PATIENT

DRUGS (1)
  1. LUMIZYME [Suspect]
     Active Substance: ALGLUCOSIDASE ALFA
     Indication: GLYCOGEN STORAGE DISEASE TYPE II
     Dosage: 1600 MG, QOW
     Route: 041
     Dates: start: 20190305

REACTIONS (8)
  - Influenza like illness [Unknown]
  - Nerve block [Unknown]
  - Fall [Unknown]
  - Intercepted product storage error [Unknown]
  - Pulmonary congestion [Unknown]
  - COVID-19 [Unknown]
  - Product dose omission issue [Unknown]
  - Movement disorder [Not Recovered/Not Resolved]

NARRATIVE: CASE EVENT DATE: 20190305
